FAERS Safety Report 7772003-0 (Version None)
Quarter: 2011Q3

REPORT INFORMATION
  Report Type: 
  Country: None (occurrence: None)
  Receive Date: 20110922
  Receipt Date: 20110131
  Transmission Date: 20111222
  Serious: Yes (Other)
  Sender: FDA-Public Use
  Company Number: US-ASTRAZENECA-2011SE05285

PATIENT
  Age: 34 Year
  Sex: Female
  Weight: 63.5 kg

DRUGS (4)
  1. LITHIUM CARBONATE [Suspect]
     Dates: start: 20060101
  2. LAMICTAL [Concomitant]
     Indication: CONVULSION
  3. SEROQUEL [Suspect]
     Indication: SCHIZOAFFECTIVE DISORDER
     Route: 048
     Dates: start: 20000101
  4. SEROQUEL [Suspect]
     Indication: BIPOLAR DISORDER
     Route: 048
     Dates: start: 20000101

REACTIONS (4)
  - VERTIGO [None]
  - BLOOD MERCURY ABNORMAL [None]
  - HEPATIC ENZYME INCREASED [None]
  - CONVULSION [None]
